FAERS Safety Report 26098585 (Version 1)
Quarter: 2025Q4

REPORT INFORMATION
  Report Type: Spontaneous
  Country: JP (occurrence: JP)
  Receive Date: 20251127
  Receipt Date: 20251127
  Transmission Date: 20260117
  Serious: Yes (Hospitalization)
  Sender: MITSUBISHI TANABE PHARMA
  Company Number: JP-MTPC-MTPC2025-0020727

PATIENT
  Age: 9 Decade
  Sex: Male

DRUGS (1)
  1. EDARAVONE [Suspect]
     Active Substance: EDARAVONE
     Indication: Cerebral infarction
     Route: 042

REACTIONS (2)
  - Cerebral infarction [Unknown]
  - Aortic arteriosclerosis [Unknown]
